FAERS Safety Report 6642236-5 (Version None)
Quarter: 2010Q1

REPORT INFORMATION
  Report Type: 
  Country: None (occurrence: None)
  Receive Date: 20100319
  Receipt Date: 20100311
  Transmission Date: 20100710
  Serious: Yes (Other)
  Sender: FDA-Public Use
  Company Number: AU-NOVOPROD-271520

PATIENT
  Sex: Male

DRUGS (9)
  1. NOVOMIX 30 [Suspect]
     Indication: TYPE 2 DIABETES MELLITUS
     Dosage: 28+40 U, QD
     Dates: start: 20080101
  2. SIMVASTATIN [Concomitant]
     Route: 048
  3. FRUSEMIDE                          /00032601/ [Concomitant]
     Route: 048
  4. METFORMIN HCL [Concomitant]
     Indication: TYPE 2 DIABETES MELLITUS
     Route: 048
  5. SALBUTAMOL [Concomitant]
  6. ZANIDIP [Concomitant]
     Route: 048
  7. MONOPLUS                           /01324101/ [Concomitant]
     Dosage: UNK
     Route: 048
  8. ALDACTONE [Concomitant]
  9. SERETIDE                           /01420901/ [Concomitant]

REACTIONS (2)
  - INJECTION SITE PRURITUS [None]
  - PULMONARY CONGESTION [None]
